FAERS Safety Report 7774652-2 (Version None)
Quarter: 2011Q3

REPORT INFORMATION
  Report Type: 
  Country: None (occurrence: None)
  Receive Date: 20110923
  Receipt Date: 20110919
  Transmission Date: 20111222
  Serious: Yes (Other)
  Sender: FDA-Public Use
  Company Number: US-PFIZER INC-2011200615

PATIENT
  Sex: Female
  Weight: 58.957 kg

DRUGS (2)
  1. REVATIO [Suspect]
     Indication: PULMONARY HYPERTENSION
     Dosage: 20 MG, 2X/DAY
     Route: 048
     Dates: start: 20110801, end: 20110801
  2. REVATIO [Suspect]
     Dosage: UNK

REACTIONS (6)
  - WEIGHT INCREASED [None]
  - ASTHENIA [None]
  - ABDOMINAL DISTENSION [None]
  - DYSPNOEA [None]
  - OEDEMA PERIPHERAL [None]
  - DIARRHOEA [None]
